FAERS Safety Report 24955950 (Version 1)
Quarter: 2025Q1

REPORT INFORMATION
  Report Type: Report from Study
  Country: GB (occurrence: GB)
  Receive Date: 20250211
  Receipt Date: 20250211
  Transmission Date: 20250409
  Serious: Yes (Other)
  Sender: SAMSUNG BIOEPIS
  Company Number: GB-SAMSUNG BIOEPIS-SB-2025-04531

PATIENT
  Age: 80 Year
  Sex: Female

DRUGS (1)
  1. ETANERCEPT [Suspect]
     Active Substance: ETANERCEPT
     Indication: Arthritis
     Route: 058
     Dates: start: 201907, end: 20250129

REACTIONS (4)
  - Atrial fibrillation [Unknown]
  - Chronic obstructive pulmonary disease [Recovering/Resolving]
  - Cardiac disorder [Unknown]
  - Off label use [Unknown]
